FAERS Safety Report 6760534-1 (Version None)
Quarter: 2010Q2

REPORT INFORMATION
  Report Type: 
  Country: None (occurrence: None)
  Receive Date: 20100608
  Receipt Date: 20100603
  Transmission Date: 20101027
  Serious: Yes (Death)
  Sender: FDA-Public Use
  Company Number: PHHY2010US36365

PATIENT

DRUGS (1)
  1. CLOZARIL [Suspect]
     Dosage: UNK,UNK

REACTIONS (1)
  - DEATH [None]
